FAERS Safety Report 7563736-X (Version None)
Quarter: 2011Q2

REPORT INFORMATION
  Report Type: 
  Country: None (occurrence: None)
  Receive Date: 20110622
  Receipt Date: 20110615
  Transmission Date: 20111010
  Serious: Yes (Hospitalization)
  Sender: FDA-Public Use
  Company Number: GB-MERCK-1105GBR00060

PATIENT
  Age: 87 Year
  Sex: Female

DRUGS (2)
  1. ATENOLOL [Concomitant]
     Route: 065
  2. FOSAMAX [Suspect]
     Indication: OSTEOPOROTIC FRACTURE
     Route: 048
     Dates: start: 20050401, end: 20110409

REACTIONS (2)
  - PAIN IN EXTREMITY [None]
  - FEMUR FRACTURE [None]
